FAERS Safety Report 9237638 (Version 4)
Quarter: 2013Q3

REPORT INFORMATION
  Report Type: Spontaneous
  Country: US (occurrence: US)
  Receive Date: 20130418
  Receipt Date: 20130717
  Transmission Date: 20140515
  Serious: Yes (Hospitalization, Other)
  Sender: FDA-Public Use
  Company Number: US-BIOGENIDEC-2013BI033155

PATIENT
  Age: 58 Year
  Sex: Female
  Weight: 91 kg

DRUGS (19)
  1. AVONEX [Suspect]
     Indication: MULTIPLE SCLEROSIS
     Route: 030
     Dates: start: 201208
  2. TRAZODONE [Concomitant]
     Route: 048
  3. RITALIN [Concomitant]
     Route: 048
  4. CEROVITE SENIOR TABLET [Concomitant]
     Route: 048
  5. COMBIVENT RESPIMAT AERSOL WITH ADAPTER [Concomitant]
     Route: 055
  6. FLUOXETINE HCL [Concomitant]
     Route: 048
  7. HYDROCHLOROTHIAZIDE [Concomitant]
     Route: 048
  8. LAMOTRIGINE (LAMICTAL) [Concomitant]
     Route: 048
  9. LEVOTHYROXINE (SYNTHROID) [Concomitant]
     Route: 048
  10. MYLANTA PRN [Concomitant]
     Route: 048
  11. OMEPRAZOLE DR [Concomitant]
     Route: 048
  12. TRIAMCINOLONE 0.5% CREAM [Concomitant]
     Route: 061
  13. SEROQUEL [Concomitant]
     Route: 048
  14. FERROUS SULF EC [Concomitant]
     Route: 048
  15. LIDODERM 5% PATCH [Concomitant]
     Route: 061
  16. PROAIR HFA AEROSOL WITH ADAPTER [Concomitant]
     Route: 055
  17. PROZAC [Concomitant]
  18. LORATADINE [Concomitant]
  19. RANITIDINE [Concomitant]

REACTIONS (20)
  - Encephalopathy [Unknown]
  - Orthopaedic procedure [Unknown]
  - Blood creatine phosphokinase abnormal [Recovered/Resolved]
  - Cardiac disorder [Unknown]
  - Memory impairment [Unknown]
  - Hypoaesthesia [Unknown]
  - Fatigue [Unknown]
  - Aspartate aminotransferase increased [Unknown]
  - Alanine aminotransferase increased [Unknown]
  - Hepatitis C [Unknown]
  - Breast cellulitis [Recovered/Resolved]
  - Multiple sclerosis relapse [Recovered/Resolved]
  - Mental impairment [Unknown]
  - Blood pressure increased [Unknown]
  - Irritability [Unknown]
  - Paraesthesia [Unknown]
  - Pain [Unknown]
  - Chills [Recovered/Resolved]
  - Musculoskeletal stiffness [Unknown]
  - Depression [Unknown]
